FAERS Safety Report 6724047-5 (Version None)
Quarter: 2010Q2

REPORT INFORMATION
  Report Type: 
  Country: None (occurrence: None)
  Receive Date: 20100513
  Receipt Date: 20100501
  Transmission Date: 20101027
  Serious: Yes (Hospitalization)
  Sender: FDA-Public Use
  Company Number: B0649643A

PATIENT
  Age: 17 Year
  Sex: Female

DRUGS (9)
  1. SUCCINYLCHOLINE CHLORIDE [Suspect]
     Dosage: 1MGK SINGLE DOSE
     Route: 065
  2. FENTANYL [Suspect]
     Dosage: 200UG SINGLE DOSE
     Route: 065
  3. ISOFLURANE [Suspect]
     Route: 065
  4. THIOPENTAL SODIUM [Suspect]
     Dosage: 5MGK SINGLE DOSE
     Route: 065
  5. VECURONIUM BROMIDE [Suspect]
     Route: 065
  6. RANITIDINE [Suspect]
     Dosage: 150MG PER DAY
     Route: 048
  7. OXYGEN [Suspect]
  8. SUCCINYLCHOLINE [Suspect]
     Dosage: 1MGK PER DAY
  9. NITROUS OXIDE [Suspect]

REACTIONS (5)
  - DRUG EXPOSURE DURING PREGNANCY [None]
  - ELECTROCARDIOGRAM QT PROLONGED [None]
  - HYPOCALCAEMIA [None]
  - TORSADE DE POINTES [None]
  - VENTRICULAR TACHYCARDIA [None]
